FAERS Safety Report 18619779 (Version 1)
Quarter: 2020Q4

REPORT INFORMATION
  Report Type: Spontaneous
  Country: US (occurrence: US)
  Receive Date: 20201215
  Receipt Date: 20201215
  Transmission Date: 20210114
  Serious: No
  Sender: FDA-Public Use
  Company Number: US-PFIZER INC-2020491807

PATIENT
  Sex: Female

DRUGS (2)
  1. SPIRONOLACTONE. [Suspect]
     Active Substance: SPIRONOLACTONE
     Dosage: UNK
  2. PEPPERMINT OIL [MENTHA X PIPERITA OIL] [Suspect]
     Active Substance: PEPPERMINT OIL
     Dosage: UNK

REACTIONS (1)
  - Reaction to excipient [Unknown]
